FAERS Safety Report 5900698-2 (Version None)
Quarter: 2008Q3

REPORT INFORMATION
  Report Type: 
  Country: None (occurrence: None)
  Receive Date: 20080926
  Receipt Date: 20080916
  Transmission Date: 20090109
  Serious: Yes (Other)
  Sender: FDA-Public Use
  Company Number: US-PFIZER INC-2008079649

PATIENT
  Sex: Male
  Weight: 88.6 kg

DRUGS (3)
  1. CHANTIX [Suspect]
     Indication: SMOKING CESSATION THERAPY
  2. VITAMIN TAB [Concomitant]
  3. AMOXICILLIN [Concomitant]
     Indication: BACTERIAL INFECTION

REACTIONS (6)
  - CARPAL TUNNEL SYNDROME [None]
  - GAIT DISTURBANCE [None]
  - GENERAL PHYSICAL HEALTH DETERIORATION [None]
  - IMPAIRED WORK ABILITY [None]
  - JOINT LOCK [None]
  - SPONDYLITIS [None]
